FAERS Safety Report 21859196 (Version 1)
Quarter: 2023Q1

REPORT INFORMATION
  Report Type: Spontaneous
  Country: AT (occurrence: AT)
  Receive Date: 20230113
  Receipt Date: 20230113
  Transmission Date: 20230417
  Serious: Yes (Other)
  Sender: FDA-Public Use
  Company Number: None

PATIENT
  Sex: Female

DRUGS (15)
  1. PACLITAXEL [Suspect]
     Active Substance: PACLITAXEL
     Indication: HER2 positive breast cancer
     Dates: start: 202003, end: 202109
  2. TRASTUZUMAB [Suspect]
     Active Substance: TRASTUZUMAB
     Indication: HER2 positive breast cancer
     Dates: start: 201909, end: 202003
  3. ADO-TRASTUZUMAB EMTANSINE [Suspect]
     Active Substance: ADO-TRASTUZUMAB EMTANSINE
     Indication: HER2 positive breast cancer
     Dates: start: 201711, end: 201909
  4. CAPECITABINE [Concomitant]
     Active Substance: CAPECITABINE
  5. VINORELBINE [Concomitant]
     Active Substance: VINORELBINE TARTRATE
  6. FLUOROURACIL [Concomitant]
     Active Substance: FLUOROURACIL
  7. CISPLATIN [Concomitant]
     Active Substance: CISPLATIN
  8. EPIRUBICIN [Concomitant]
     Active Substance: EPIRUBICIN
  9. DOCETAXEL [Concomitant]
     Active Substance: DOCETAXEL
  10. DENOSUMAB [Concomitant]
     Active Substance: DENOSUMAB
  11. CYCLOPHOSPHAMIDE [Concomitant]
     Active Substance: CYCLOPHOSPHAMIDE
  12. ANASTROZOLE [Concomitant]
     Active Substance: ANASTROZOLE
  13. TRASTUZUMAB [Suspect]
     Active Substance: TRASTUZUMAB
     Indication: HER2 positive breast cancer
     Dates: start: 202109
  14. TRASTUZUMAB [Suspect]
     Active Substance: TRASTUZUMAB
     Indication: HER2 positive breast cancer
     Dates: start: 202003
  15. TRASTUZUMAB [Suspect]
     Active Substance: TRASTUZUMAB
     Indication: HER2 positive breast cancer

REACTIONS (3)
  - Disease progression [Unknown]
  - Metastases to central nervous system [Unknown]
  - Cardiotoxicity [Unknown]

NARRATIVE: CASE EVENT DATE: 20201201
